FAERS Safety Report 6240566-2 (Version None)
Quarter: 2009Q2

REPORT INFORMATION
  Report Type: 
  Country: None (occurrence: None)
  Receive Date: 20090623
  Receipt Date: 20080929
  Transmission Date: 20091009
  Serious: No
  Sender: FDA-Public Use
  Company Number: US-ASTRAZENECA-2008UW21127

PATIENT
  Age: 69 Year
  Sex: Female
  Weight: 56.7 kg

DRUGS (11)
  1. PULMICORT FLEXHALER [Suspect]
     Indication: CHRONIC OBSTRUCTIVE PULMONARY DISEASE
     Dosage: 1 PUFF
     Route: 055
     Dates: start: 20080901
  2. ATENOLOL [Concomitant]
  3. EVOXAC [Concomitant]
  4. PRILOSEC OTC [Concomitant]
  5. PERFORAMIST NEBULIZER [Concomitant]
  6. ATROVENT [Concomitant]
  7. MULTI-VITAMIN [Concomitant]
  8. CALCIUM [Concomitant]
  9. LOVAZA [Concomitant]
  10. VITAMIN B COMPLEX CAP [Concomitant]
  11. ADVAIR HFA [Concomitant]
     Dosage: 500/50 BID

REACTIONS (1)
  - THERAPEUTIC RESPONSE UNEXPECTED [None]
